FAERS Safety Report 18503256 (Version 2)
Quarter: 2021Q1

REPORT INFORMATION
  Report Type: Spontaneous
  Country: US (occurrence: US)
  Receive Date: 20201113
  Receipt Date: 20210129
  Transmission Date: 20210419
  Serious: No
  Sender: FDA-Public Use
  Company Number: US-PFIZER INC-2020449622

PATIENT
  Age: 52 Year
  Sex: Female
  Weight: 70 kg

DRUGS (6)
  1. OMEGA 3 + VITAMIN D [Concomitant]
     Dosage: UNK [COLECALCIFEROL: 150MG/ FISH OIL: 500 MG]
  2. ZINC. [Concomitant]
     Active Substance: ZINC
     Dosage: 66 MG
  3. IBRANCE [Suspect]
     Active Substance: PALBOCICLIB
     Dosage: 75 MG, CYCLIC (1 DAILY FOR 21 DAYS)
     Route: 048
     Dates: start: 202011
  4. MAGNESIUM [Concomitant]
     Active Substance: MAGNESIUM
     Dosage: 100 MG
  5. IBRANCE [Suspect]
     Active Substance: PALBOCICLIB
     Indication: BREAST CANCER FEMALE
     Dosage: 100 MG, CYCLIC (QD (DAILY) X21 DAYS)
     Dates: start: 20201029
  6. LETROZOLE. [Concomitant]
     Active Substance: LETROZOLE
     Dosage: 2.5 MG

REACTIONS (3)
  - Headache [Recovered/Resolved]
  - Condition aggravated [Unknown]
  - Hypoaesthesia [Unknown]

NARRATIVE: CASE EVENT DATE: 20201030
